FAERS Safety Report 6652950-3 (Version None)
Quarter: 2010Q1

REPORT INFORMATION
  Report Type: 
  Country: None (occurrence: None)
  Receive Date: 20100326
  Receipt Date: 20100311
  Transmission Date: 20100710
  Serious: Yes (Hospitalization, Other)
  Sender: FDA-Public Use
  Company Number: PHHY2010DE15476

PATIENT
  Sex: Female

DRUGS (6)
  1. CGS 20267 T30748+ [Suspect]
     Indication: BREAST CANCER
     Dosage: 2.5 MG DAILY
     Route: 048
     Dates: start: 20090331
  2. FALICARD [Concomitant]
     Dosage: 1 X DAILY
  3. ALLOPURINOL [Concomitant]
     Dosage: 1 X DAILY
  4. DIGITOXIN TAB [Concomitant]
     Dosage: 1 X DAILY
  5. RAMIPRIL [Concomitant]
     Dosage: 1 X DAILY
  6. RADIATION THERAPY [Concomitant]
     Dosage: UNK
     Dates: start: 20090507

REACTIONS (3)
  - ANKLE FRACTURE [None]
  - FALL [None]
  - INTERNAL FIXATION OF FRACTURE [None]
